FAERS Safety Report 8922585 (Version 1)
Quarter: 2012Q4

REPORT INFORMATION
  Report Type: 
  Country: US (occurrence: US)
  Receive Date: 20121125
  Receipt Date: 20121125
  Transmission Date: 20130627
  Serious: No
  Sender: FDA-Public Use
  Company Number: US-009507513-1211USA007117

PATIENT

DRUGS (3)
  1. SAPHRIS [Suspect]
  2. TOPAMAX [Concomitant]
  3. LAMICTAL [Concomitant]

REACTIONS (1)
  - Blood immunoglobulin G decreased [Unknown]
